FAERS Safety Report 5879313-2 (Version None)
Quarter: 2008Q3

REPORT INFORMATION
  Report Type: 
  Country: None (occurrence: None)
  Receive Date: 20080912
  Receipt Date: 20080910
  Transmission Date: 20090109
  Serious: Yes (Hospitalization)
  Sender: FDA-Public Use
  Company Number: US-BAYER-200811983BCC

PATIENT
  Age: 68 Year
  Sex: Female
  Weight: 122 kg

DRUGS (8)
  1. ALKA SELTZER ORIGINAL [Suspect]
     Indication: STOMACH DISCOMFORT
     Dosage: TOTAL DAILY DOSE: 2 DF  UNIT DOSE: 1 DF
     Route: 048
     Dates: start: 20080518, end: 20080518
  2. CALTRATE [Concomitant]
  3. ATENOLOL [Concomitant]
  4. SIMVASTATIN [Concomitant]
  5. OMEPRAZOLE [Concomitant]
  6. LORATADINE [Concomitant]
  7. AMLODIPINE [Concomitant]
  8. ONE A DAY WOMENS [Concomitant]

REACTIONS (7)
  - APHAGIA [None]
  - DYSPNOEA [None]
  - HYPERSENSITIVITY [None]
  - PRURITUS [None]
  - RASH GENERALISED [None]
  - SWELLING FACE [None]
  - THROAT TIGHTNESS [None]
